FAERS Safety Report 6285179-1 (Version None)
Quarter: 2009Q3

REPORT INFORMATION
  Report Type: 
  Country: None (occurrence: None)
  Receive Date: 20090727
  Receipt Date: 20090715
  Transmission Date: 20100115
  Serious: Yes (Disabling)
  Sender: FDA-Public Use
  Company Number: PHHY2009FR29516

PATIENT
  Sex: Male

DRUGS (3)
  1. ZOMETA [Suspect]
     Indication: MULTIPLE MYELOMA
     Dosage: UNK
  2. PREVISCAN [Concomitant]
     Indication: PULMONARY EMBOLISM
     Dosage: UNK
     Route: 048
  3. SKENAN [Concomitant]
     Indication: BONE PAIN
     Dosage: UNK
     Route: 048

REACTIONS (2)
  - BONE DISORDER [None]
  - OSTEONECROSIS [None]
